FAERS Safety Report 4405314-7 (Version None)
Quarter: 2004Q3

REPORT INFORMATION
  Report Type: 
  Country: None (occurrence: None)
  Receive Date: 20040723
  Receipt Date: 20040712
  Transmission Date: 20050211
  Serious: Yes (Other)
  Sender: FDA-Public Use
  Company Number: AU-BRISTOL-MYERS SQUIBB COMPANY-12636890

PATIENT
  Sex: Male

DRUGS (5)
  1. SOTALOL HCL [Suspect]
  2. PRAVACHOL [Suspect]
     Indication: BLOOD CHOLESTEROL
     Dosage: TAKEN AT NIGHT
     Route: 048
     Dates: start: 20030501, end: 20040622
  3. WARFARIN SODIUM [Concomitant]
  4. NORVASC [Concomitant]
  5. TRITACE [Concomitant]

REACTIONS (4)
  - HYPOAESTHESIA [None]
  - MYALGIA [None]
  - PERIPHERAL COLDNESS [None]
  - SUICIDAL IDEATION [None]
